FAERS Safety Report 7921793-2 (Version None)
Quarter: 2011Q4

REPORT INFORMATION
  Report Type: 
  Country: None (occurrence: None)
  Receive Date: 20111117
  Receipt Date: 20111110
  Transmission Date: 20120403
  Serious: Yes (Hospitalization)
  Sender: FDA-Public Use
  Company Number: CZ-GLAXOSMITHKLINE-B0763343A

PATIENT
  Age: 3 Year
  Sex: Male

DRUGS (1)
  1. ZINACEF [Suspect]
     Indication: BRONCHOPNEUMONIA

REACTIONS (1)
  - DIARRHOEA HAEMORRHAGIC [None]
